FAERS Safety Report 7441633-8 (Version None)
Quarter: 2011Q2

REPORT INFORMATION
  Report Type: 
  Country: None (occurrence: None)
  Receive Date: 20110425
  Receipt Date: 20110425
  Transmission Date: 20111010
  Serious: Yes (Other)
  Sender: FDA-Public Use
  Company Number: None

PATIENT
  Age: 48 Year
  Sex: Female
  Weight: 68.0396 kg

DRUGS (2)
  1. DOXYCYCLINE [Suspect]
     Indication: BACTERIAL INFECTION
     Dosage: PROTOCOL FOR ROSACEA PO
     Route: 048
     Dates: start: 20070201, end: 20070228
  2. TETRACYCLINE [Suspect]
     Indication: ROSACEA
     Dosage: PROTOCOL FOR BACTERIAL INFECTION PO
     Route: 048
     Dates: start: 20070320, end: 20070331

REACTIONS (3)
  - TINNITUS [None]
  - BENIGN INTRACRANIAL HYPERTENSION [None]
  - FEELING ABNORMAL [None]
